FAERS Safety Report 5665013-0 (Version None)
Quarter: 2008Q1

REPORT INFORMATION
  Report Type: 
  Country: None (occurrence: None)
  Receive Date: 20080314
  Receipt Date: 20080304
  Transmission Date: 20080703
  Serious: Yes (Death, Other)
  Sender: FDA-Public Use
  Company Number: FI-PFIZER INC-2008020228

PATIENT
  Age: 65 Year
  Sex: Male

DRUGS (1)
  1. LYRICA [Suspect]
     Indication: NEURALGIA
     Route: 048

REACTIONS (2)
  - DEATH [None]
  - DIPLOPIA [None]
